FAERS Safety Report 12390659 (Version 1)
Quarter: 2016Q2

REPORT INFORMATION
  Report Type: Spontaneous
  Country: TR (occurrence: TR)
  Receive Date: 20160520
  Receipt Date: 20160520
  Transmission Date: 20160815
  Serious: Yes (Death, Other)
  Sender: FDA-Public Use
  Company Number: TR-TAKEDA-2016TUS008541

PATIENT
  Age: 18 Year
  Sex: Female

DRUGS (1)
  1. COLCHICINE. [Suspect]
     Active Substance: COLCHICINE
     Indication: ABDOMINAL PAIN
     Dosage: 4.5 MG, UNK
     Route: 065

REACTIONS (4)
  - Rhabdomyolysis [Unknown]
  - Overdose [Unknown]
  - Off label use [Unknown]
  - Toxicity to various agents [Fatal]
